FAERS Safety Report 7727119-1 (Version None)
Quarter: 2011Q3

REPORT INFORMATION
  Report Type: 
  Country: None (occurrence: None)
  Receive Date: 20110902
  Receipt Date: 20110824
  Transmission Date: 20111222
  Serious: Yes (Life-Threatening, Other)
  Sender: FDA-Public Use
  Company Number: US-ABBOTT-11P-163-0847736-00

PATIENT
  Sex: Male
  Weight: 105.78 kg

DRUGS (7)
  1. LEVAQUIN [Concomitant]
     Indication: CHEMOTHERAPY
     Dates: start: 20110810
  2. CLOBEX [Concomitant]
     Indication: PSORIASIS
     Dates: start: 20101116
  3. VECTICAL [Concomitant]
     Indication: PSORIASIS
     Dates: start: 20101116
  4. HUMIRA [Suspect]
     Indication: PSORIASIS
     Route: 058
     Dates: start: 20110120, end: 20110504
  5. COMMERCIAL HUMIRA [Concomitant]
     Indication: PRODUCT USED FOR UNKNOWN INDICATION
     Route: 058
     Dates: start: 20101215
  6. CELEBREX [Concomitant]
     Indication: PSORIASIS
     Dates: start: 20101116
  7. LEVAQUIN [Concomitant]
     Indication: PROPHYLAXIS

REACTIONS (1)
  - MULTIPLE MYELOMA [None]
